FAERS Safety Report 19077700 (Version 15)
Quarter: 2022Q1

REPORT INFORMATION
  Report Type: Report from Study
  Country: US (occurrence: US)
  Receive Date: 20210331
  Receipt Date: 20220311
  Transmission Date: 20220423
  Serious: Yes (Hospitalization, Other)
  Sender: FDA-Public Use
  Company Number: NVSC2021US067791

PATIENT
  Age: 84 Year
  Sex: Female

DRUGS (4)
  1. ENTRESTO [Suspect]
     Active Substance: SACUBITRIL\VALSARTAN
     Indication: Product used for unknown indication
     Dosage: 50 MG, BID (24/26 MG)
     Route: 065
     Dates: start: 20210316
  2. ENTRESTO [Suspect]
     Active Substance: SACUBITRIL\VALSARTAN
     Dosage: 100 MG, BID (49/51 MG)
     Route: 065
     Dates: start: 20210316
  3. ENTRESTO [Suspect]
     Active Substance: SACUBITRIL\VALSARTAN
     Dosage: 1 DOSAGE FORM, BID (24/26 MG)
     Route: 048
  4. ENTRESTO [Suspect]
     Active Substance: SACUBITRIL\VALSARTAN
     Dosage: 100 MG, BID (49/51 MG)
     Route: 065

REACTIONS (17)
  - Dyspnoea [Not Recovered/Not Resolved]
  - Incoherent [Recovered/Resolved]
  - Haematochezia [Recovered/Resolved]
  - Hypertension [Not Recovered/Not Resolved]
  - Weight fluctuation [Not Recovered/Not Resolved]
  - Alopecia [Not Recovered/Not Resolved]
  - Anxiety [Not Recovered/Not Resolved]
  - Weight decreased [Not Recovered/Not Resolved]
  - Heart rate decreased [Recovering/Resolving]
  - Stress [Not Recovered/Not Resolved]
  - Essential tremor [Not Recovered/Not Resolved]
  - Malaise [Not Recovered/Not Resolved]
  - Nervousness [Unknown]
  - Dizziness postural [Unknown]
  - Nausea [Unknown]
  - Hypotension [Unknown]
  - Fatigue [Not Recovered/Not Resolved]

NARRATIVE: CASE EVENT DATE: 20210301
